FAERS Safety Report 11090007 (Version 5)
Quarter: 2015Q3

REPORT INFORMATION
  Report Type: Spontaneous
  Country: JP (occurrence: JP)
  Receive Date: 20150505
  Receipt Date: 20150714
  Transmission Date: 20151125
  Serious: Yes (Hospitalization, Other)
  Sender: FDA-Public Use
  Company Number: JP-PFIZER INC-2015146568

PATIENT
  Age: 74 Year
  Sex: Male
  Weight: 62 kg

DRUGS (2)
  1. AMIODARONE HCL [Suspect]
     Active Substance: AMIODARONE HYDROCHLORIDE
     Indication: ATRIAL FIBRILLATION
     Dosage: 100 MG, DAILY
     Route: 048
  2. APIXABAN [Interacting]
     Active Substance: APIXABAN
     Dosage: 10 MG, DAILY
     Route: 065

REACTIONS (2)
  - Cerebral haemorrhage [Recovering/Resolving]
  - Drug interaction [Recovering/Resolving]
